FAERS Safety Report 13932250 (Version 1)
Quarter: 2017Q3

REPORT INFORMATION
  Report Type: Spontaneous
  Country: US (occurrence: US)
  Receive Date: 20170904
  Receipt Date: 20170904
  Transmission Date: 20171127
  Serious: No
  Sender: FDA-Public Use
  Company Number: US-PFIZER INC-2017382321

PATIENT
  Age: 51 Year
  Sex: Female

DRUGS (1)
  1. XELJANZ [Suspect]
     Active Substance: TOFACITINIB CITRATE
     Dosage: 5 MG, UNK

REACTIONS (4)
  - Arthralgia [Unknown]
  - Joint swelling [Unknown]
  - Rash [Unknown]
  - Musculoskeletal stiffness [Unknown]
